FAERS Safety Report 11792145 (Version 2)
Quarter: 2016Q1

REPORT INFORMATION
  Report Type: Report from Study
  Country: KR (occurrence: KR)
  Receive Date: 20151201
  Receipt Date: 20160309
  Transmission Date: 20160525
  Serious: Yes (Hospitalization, Other)
  Sender: FDA-Public Use
  Company Number: KR-B.I. PHARMACEUTICALS,INC./RIDGEFIELD-2015-BI-66422BI

PATIENT
  Age: 54 Year
  Sex: Female

DRUGS (4)
  1. AMLODIPINE BESYLATE. [Suspect]
     Active Substance: AMLODIPINE BESYLATE
     Indication: PRODUCT USED FOR UNKNOWN INDICATION
     Dosage: 6.935 MG
     Route: 065
  2. GABAPENTIN. [Suspect]
     Active Substance: GABAPENTIN
     Indication: PRODUCT USED FOR UNKNOWN INDICATION
     Dosage: 300 MG
     Route: 065
  3. MILNACIPRAN [Suspect]
     Active Substance: MILNACIPRAN
     Indication: PRODUCT USED FOR UNKNOWN INDICATION
     Dosage: 25 MG
     Route: 065
  4. MICARDIS [Suspect]
     Active Substance: TELMISARTAN
     Indication: PRODUCT USED FOR UNKNOWN INDICATION
     Dosage: 40 MG
     Route: 065

REACTIONS (5)
  - Cerebrovascular accident [Unknown]
  - Musculoskeletal disorder [Unknown]
  - Alanine aminotransferase increased [Unknown]
  - Nervous system disorder [Unknown]
  - Drug-induced liver injury [Unknown]
